FAERS Safety Report 4713325-7 (Version None)
Quarter: 2005Q3

REPORT INFORMATION
  Report Type: 
  Country: None (occurrence: None)
  Receive Date: 20050713
  Receipt Date: 20050610
  Transmission Date: 20060218
  Serious: Yes (Hospitalization)
  Sender: FDA-Public Use
  Company Number: JP-GLAXOSMITHKLINE-B0384273A

PATIENT
  Age: 68 Year
  Sex: Male

DRUGS (14)
  1. VALTREX [Suspect]
     Indication: HERPES ZOSTER
     Dosage: 1000MG THREE TIMES PER DAY
     Route: 048
     Dates: start: 20050531, end: 20050603
  2. METHYCOOL [Concomitant]
     Indication: HERPES ZOSTER
     Dosage: 1.5MG PER DAY
     Route: 048
     Dates: start: 20050531, end: 20050603
  3. TROXSIN [Concomitant]
     Indication: HERPES ZOSTER
     Dosage: 300MG PER DAY
     Route: 048
     Dates: start: 20050531, end: 20050603
  4. TEGRETOL [Concomitant]
     Dosage: 600MG PER DAY
     Route: 048
  5. TERNELIN [Concomitant]
     Route: 048
  6. INFREE [Concomitant]
     Route: 048
  7. COLONEL [Concomitant]
     Route: 048
  8. SOLANAX [Concomitant]
     Dosage: .8MG PER DAY
     Route: 048
  9. DIHYDROERGOTAMINE MESYLATE [Concomitant]
     Route: 048
  10. HYDERGINE [Concomitant]
     Route: 048
  11. DEPAS [Concomitant]
     Dosage: .3G PER DAY
     Route: 048
  12. RISPERDAL [Concomitant]
     Dosage: .3G PER DAY
     Route: 048
  13. TASMOLIN [Concomitant]
     Dosage: .3G PER DAY
     Route: 048
  14. MARZULENE S [Concomitant]
     Dosage: 1.5G PER DAY
     Route: 048

REACTIONS (8)
  - BLOOD CREATININE INCREASED [None]
  - BLOOD ELECTROLYTES ABNORMAL [None]
  - BLOOD UREA INCREASED [None]
  - DIZZINESS [None]
  - GAMMA-GLUTAMYLTRANSFERASE INCREASED [None]
  - HAEMATEMESIS [None]
  - RENAL FAILURE ACUTE [None]
  - SINUS ARRHYTHMIA [None]
